FAERS Safety Report 7509315-1 (Version None)
Quarter: 2011Q2

REPORT INFORMATION
  Report Type: 
  Country: None (occurrence: None)
  Receive Date: 20110527
  Receipt Date: 20110519
  Transmission Date: 20111010
  Serious: Yes (Other)
  Sender: FDA-Public Use
  Company Number: JP-ROCHE-778894

PATIENT
  Sex: Female
  Weight: 53 kg

DRUGS (11)
  1. XELODA [Suspect]
     Indication: COLON CANCER METASTATIC
     Route: 048
     Dates: start: 20091112, end: 20091130
  2. DECADRON [Suspect]
     Route: 041
     Dates: start: 20091224, end: 20091224
  3. OXALIPLATIN [Concomitant]
     Route: 041
     Dates: start: 20091112
  4. LEUCOVORIN CALCIUM [Concomitant]
     Route: 041
     Dates: start: 20080424, end: 20091015
  5. AVASTIN [Suspect]
     Route: 041
     Dates: start: 20080516, end: 20100108
  6. DECADRON [Suspect]
     Indication: COLON CANCER METASTATIC
     Route: 048
     Dates: start: 20091203, end: 20091207
  7. FLUOROURACIL [Concomitant]
     Route: 040
     Dates: start: 20080424, end: 20091015
  8. DECADRON [Suspect]
     Route: 041
     Dates: start: 20091203, end: 20091203
  9. AVASTIN [Suspect]
     Indication: COLON CANCER METASTATIC
     Route: 041
     Dates: start: 20080828, end: 20091015
  10. DECADRON [Suspect]
     Route: 048
     Dates: start: 20091224, end: 20091228
  11. IRINOTECAN HCL [Concomitant]
     Route: 041
     Dates: start: 20080424, end: 20091015

REACTIONS (2)
  - DUODENITIS [None]
  - DUODENAL ULCER [None]
